FAERS Safety Report 5624897-2 (Version None)
Quarter: 2008Q1

REPORT INFORMATION
  Report Type: 
  Country: None (occurrence: None)
  Receive Date: 20080208
  Receipt Date: 20080129
  Transmission Date: 20080703
  Serious: Yes (Death, Hospitalization)
  Sender: FDA-Public Use
  Company Number: 2007BI014441

PATIENT
  Age: 60 Year
  Sex: Male

DRUGS (7)
  1. AVONEX [Suspect]
     Indication: MULTIPLE SCLEROSIS
     Dosage: 1, QW; IM
     Route: 030
     Dates: start: 20050101
  2. ASPIRIN [Concomitant]
  3. CAPTOPRIL [Concomitant]
  4. CARBAMAZEPINE [Concomitant]
  5. GLIBENCLAMIDE [Concomitant]
  6. HYDROCHLOROTHIAZIDE [Concomitant]
  7. METICORTEN [Concomitant]

REACTIONS (4)
  - CARDIAC ARREST [None]
  - DIABETIC FOOT INFECTION [None]
  - LEG AMPUTATION [None]
  - MULTIPLE SCLEROSIS RELAPSE [None]
